FAERS Safety Report 9034801 (Version 1)
Quarter: 2013Q1

REPORT INFORMATION
  Report Type: Spontaneous
  Country: US (occurrence: US)
  Receive Date: 20130128
  Receipt Date: 20130128
  Transmission Date: 20140127
  Serious: Yes (Life-Threatening, Hospitalization)
  Sender: FDA-Public Use
  Company Number: US-ASTRAZENECA-2013SE05009

PATIENT
  Sex: Male

DRUGS (1)
  1. BRILINTA [Suspect]
     Indication: ACUTE CORONARY SYNDROME
     Route: 048

REACTIONS (6)
  - Shock [Unknown]
  - Coma [Unknown]
  - Renal failure [Unknown]
  - Hepatic failure [Unknown]
  - Thrombocytopenia [Unknown]
  - Haemorrhage [Not Recovered/Not Resolved]
